FAERS Safety Report 6602903-6 (Version None)
Quarter: 2010Q1

REPORT INFORMATION
  Report Type: 
  Country: None (occurrence: None)
  Receive Date: 20100218
  Receipt Date: 20100120
  Transmission Date: 20100710
  Serious: Yes (Hospitalization, Other)
  Sender: FDA-Public Use
  Company Number: JPI-P-009576

PATIENT
  Age: 53 Year
  Sex: Male

DRUGS (5)
  1. XYREM [Suspect]
     Indication: CATAPLEXY
     Dosage: 4.5 GM (2.25 GM, 2 IN 1 D), ORAL
     Route: 048
     Dates: start: 20090922, end: 20091104
  2. XYREM [Suspect]
     Indication: CATAPLEXY
     Dosage: 4.5 GM (2.25 GM, 2 IN 1 D), ORAL
     Route: 048
     Dates: start: 20080801
  3. MODAFINIL [Concomitant]
  4. INSULIN [Concomitant]
  5. DULOXETINE HYDROCHLORIDE [Concomitant]

REACTIONS (8)
  - DRY MOUTH [None]
  - FALL [None]
  - LARGE INTESTINE PERFORATION [None]
  - MIDDLE INSOMNIA [None]
  - NAUSEA [None]
  - NIGHTMARE [None]
  - TERMINAL INSOMNIA [None]
  - TREATMENT NONCOMPLIANCE [None]
